FAERS Safety Report 6324486-0 (Version None)
Quarter: 2009Q3

REPORT INFORMATION
  Report Type: 
  Country: None (occurrence: None)
  Receive Date: 20090824
  Receipt Date: 20090429
  Transmission Date: 20100115
  Serious: No
  Sender: FDA-Public Use
  Company Number: US-ABBOTT-09P-163-0570782-00

PATIENT
  Age: 54 Year
  Sex: Male

DRUGS (1)
  1. NIASPAN [Suspect]
     Indication: BLOOD CHOLESTEROL INCREASED
     Dates: start: 20090201

REACTIONS (3)
  - HYPOPHAGIA [None]
  - OESOPHAGEAL SPASM [None]
  - OESOPHAGEAL ULCER [None]
